FAERS Safety Report 24891039 (Version 1)
Quarter: 2025Q1

REPORT INFORMATION
  Report Type: Spontaneous
  Country: US (occurrence: None)
  Receive Date: 20250127
  Receipt Date: 20250127
  Transmission Date: 20250409
  Serious: Yes (Hospitalization, Disabling)
  Sender: FDA-CTU
  Company Number: None

PATIENT
  Age: 65 Year
  Sex: Female
  Weight: 57.15 kg

DRUGS (15)
  1. TIMOLOL [Suspect]
     Active Substance: TIMOLOL
     Indication: Product used for unknown indication
     Dosage: EVERY 4 HOURS OPHTHALMIC
     Route: 047
     Dates: start: 20241219, end: 20250103
  2. BRIMONIDINE TARTRATE [Suspect]
     Active Substance: BRIMONIDINE TARTRATE
     Indication: Product used for unknown indication
     Dosage: EVERY 4 HOURS OPTHALMIC ?
     Route: 047
     Dates: start: 20241219, end: 20250103
  3. ASPIRIN [Concomitant]
     Active Substance: ASPIRIN
  4. METFORMIN [Concomitant]
     Active Substance: METFORMIN HYDROCHLORIDE
  5. VALTREX [Concomitant]
     Active Substance: VALACYCLOVIR HYDROCHLORIDE
  6. Methanmine [Concomitant]
  7. CRESTOR [Concomitant]
     Active Substance: ROSUVASTATIN CALCIUM
  8. Bystulic [Concomitant]
  9. VALACYCLOVIR [Concomitant]
     Active Substance: VALACYCLOVIR HYDROCHLORIDE
  10. combigan optholmic [Concomitant]
  11. predenisolone optholmic [Concomitant]
  12. KETOCONAZOLE [Concomitant]
     Active Substance: KETOCONAZOLE
  13. MISOPROSTOL [Concomitant]
     Active Substance: MISOPROSTOL
  14. ROSUVASTATIN [Concomitant]
     Active Substance: ROSUVASTATIN
  15. atrophine [Concomitant]

REACTIONS (6)
  - Mental disorder [None]
  - Toxicity to various agents [None]
  - Eye swelling [None]
  - Eye irritation [None]
  - Eye pruritus [None]
  - Eye discharge [None]

NARRATIVE: CASE EVENT DATE: 20241219
